FAERS Safety Report 19613830 (Version 4)
Quarter: 2021Q4

REPORT INFORMATION
  Report Type: Spontaneous
  Country: IT (occurrence: IT)
  Receive Date: 20210727
  Receipt Date: 20211007
  Transmission Date: 20220303
  Serious: Yes (Hospitalization, Disabling)
  Sender: FDA-Public Use
  Company Number: IT-CELGENE-ITA-20210704024

PATIENT
  Age: 81 Year
  Sex: Female

DRUGS (16)
  1. AZACITIDINE [Suspect]
     Active Substance: AZACITIDINE
     Indication: Acute myeloid leukaemia
     Route: 065
     Dates: start: 20210611
  2. PEVONEDISTAT [Suspect]
     Active Substance: PEVONEDISTAT
     Indication: Acute myeloid leukaemia
     Route: 065
     Dates: start: 20210611
  3. VENETOCLAX [Suspect]
     Active Substance: VENETOCLAX
     Indication: Acute myeloid leukaemia
     Route: 065
     Dates: start: 20210611
  4. ENOXAPARIN [Concomitant]
     Active Substance: ENOXAPARIN
     Indication: Atrial fibrillation
     Route: 065
     Dates: start: 20210601
  5. TIZANIDINE [Concomitant]
     Active Substance: TIZANIDINE
     Indication: Neck pain
     Route: 065
     Dates: start: 20210607, end: 20210622
  6. KETOROLAC [Concomitant]
     Active Substance: KETOROLAC TROMETHAMINE
     Indication: Neck pain
     Route: 065
     Dates: start: 20210607, end: 20210615
  7. BETAMETHASONE [Concomitant]
     Active Substance: BETAMETHASONE
     Indication: Neck pain
     Route: 065
     Dates: start: 20210607, end: 20210616
  8. Oxicodona/Acetaminofen [Concomitant]
     Indication: Neck pain
     Route: 065
     Dates: start: 20210616, end: 20210622
  9. DIAZEPAM [Concomitant]
     Active Substance: DIAZEPAM
     Indication: Neck pain
     Route: 065
     Dates: start: 20210616, end: 20210622
  10. PANTOPRAZOLE [Concomitant]
     Active Substance: PANTOPRAZOLE
     Indication: Gastric disorder
     Route: 065
     Dates: start: 202106
  11. HYDROCHLOROTHIAZIDE\VALSARTAN [Concomitant]
     Active Substance: HYDROCHLOROTHIAZIDE\VALSARTAN
     Indication: Hypertension
     Route: 065
     Dates: end: 20210625
  12. BISOPROLOL [Concomitant]
     Active Substance: BISOPROLOL
     Indication: Hypertension
     Route: 065
     Dates: start: 2011
  13. BISOPROLOL [Concomitant]
     Active Substance: BISOPROLOL
     Indication: Atrial fibrillation
  14. ONDANSETRON HYDROCHLORIDE [Concomitant]
     Active Substance: ONDANSETRON HYDROCHLORIDE
     Indication: Prophylaxis of nausea and vomiting
     Route: 065
     Dates: start: 20210611, end: 20210617
  15. METFORMIN HYDROCHLORIDE [Concomitant]
     Active Substance: METFORMIN HYDROCHLORIDE
     Indication: Type 2 diabetes mellitus
     Route: 065
     Dates: start: 2018
  16. SITAGLIPTIN [Concomitant]
     Active Substance: SITAGLIPTIN
     Indication: Type 2 diabetes mellitus
     Route: 065
     Dates: start: 2018

REACTIONS (1)
  - Intervertebral discitis [Recovered/Resolved]

NARRATIVE: CASE EVENT DATE: 20210621
